FAERS Safety Report 13401204 (Version 1)
Quarter: 2017Q2

REPORT INFORMATION
  Report Type: Spontaneous
  Country: CN (occurrence: CN)
  Receive Date: 20170404
  Receipt Date: 20170404
  Transmission Date: 20170830
  Serious: Yes (Hospitalization, Other)
  Sender: FDA-Public Use
  Company Number: CN-ASTRAZENECA-2017SE34033

PATIENT
  Sex: Female
  Weight: 53 kg

DRUGS (4)
  1. ASPIRIN. [Suspect]
     Active Substance: ASPIRIN
     Indication: MYOCARDIAL INFARCTION
     Route: 048
     Dates: start: 20160523, end: 20161003
  2. PENICILLIN NOS [Concomitant]
     Active Substance: PENICILLIN
  3. STREPTOMYCIN [Concomitant]
     Active Substance: STREPTOMYCIN\STREPTOMYCIN SULFATE
  4. TICAGRELOR [Suspect]
     Active Substance: TICAGRELOR
     Indication: MYOCARDIAL INFARCTION
     Route: 048
     Dates: start: 20160523, end: 20161003

REACTIONS (5)
  - Parkinson^s disease [Unknown]
  - Chronic gastritis [Unknown]
  - Ulcer haemorrhage [Recovering/Resolving]
  - Shock haemorrhagic [Unknown]
  - Cholangitis [Unknown]
